FAERS Safety Report 25465252 (Version 3)
Quarter: 2025Q4

REPORT INFORMATION
  Report Type: Spontaneous
  Country: US (occurrence: US)
  Receive Date: 20250622
  Receipt Date: 20251212
  Transmission Date: 20260119
  Serious: Yes (Other)
  Sender: BAUSCH AND LOMB
  Company Number: US-BAUSCHBL-2025BNL010531

PATIENT
  Age: 41 Year
  Sex: Female

DRUGS (2)
  1. BLINK NOURISH DRY EYE [Suspect]
     Active Substance: GLYCERIN
     Indication: Dry eye
     Route: 047
     Dates: start: 202506, end: 202506
  2. BLINK NOURISH DRY EYE [Suspect]
     Active Substance: GLYCERIN

REACTIONS (5)
  - Product contamination microbial [Unknown]
  - Drug ineffective [Unknown]
  - Product container issue [Unknown]
  - Poor quality product administered [Unknown]
  - Product storage error [Unknown]

NARRATIVE: CASE EVENT DATE: 20250601
